FAERS Safety Report 6315020-X (Version None)
Quarter: 2009Q3

REPORT INFORMATION
  Report Type: 
  Country: None (occurrence: None)
  Receive Date: 20090818
  Receipt Date: 20090818
  Transmission Date: 20100115
  Serious: Yes (Hospitalization)
  Sender: FDA-Public Use
  Company Number: None

PATIENT
  Age: 33 Year
  Sex: Female
  Weight: 52.1637 kg

DRUGS (2)
  1. CLOSE UP FRESHENING RED GEL 6OZ ANTICAVITY FLUORIDE TOOTHPASTE CHURCH [Suspect]
     Indication: DENTAL DISORDER PROPHYLAXIS
     Dosage: PEA SIZE AMOUNT ONCE DAILY DENTAL
     Route: 004
     Dates: start: 20080701, end: 20090816
  2. CLOSE UP WHITENING SPARKLE 4 OZ ANTICAVITY FLOURIDE CHURCH + DWIGHT CO [Suspect]
     Indication: DENTAL DISORDER PROPHYLAXIS
     Dosage: PEA SIZE AMOUNT ONCE DAILY DENTAL
     Route: 004
     Dates: start: 20080701, end: 20090816

REACTIONS (8)
  - DEHYDRATION [None]
  - DYSGEUSIA [None]
  - FATIGUE [None]
  - HEART RATE INCREASED [None]
  - INSOMNIA [None]
  - NAUSEA [None]
  - POLLAKIURIA [None]
  - RENAL PAIN [None]
